FAERS Safety Report 18877458 (Version 1)
Quarter: 2021Q1

REPORT INFORMATION
  Report Type: Spontaneous
  Country: US (occurrence: US)
  Receive Date: 20210211
  Receipt Date: 20210211
  Transmission Date: 20210420
  Serious: No
  Sender: FDA-Public Use
  Company Number: US-BAUSCH-BL-2021-000895

PATIENT
  Age: 55 Year
  Sex: Female

DRUGS (3)
  1. MESALAMINE EXTENDED?RELEASE CAPSULES [Suspect]
     Active Substance: MESALAMINE
     Indication: CROHN^S DISEASE
     Route: 048
     Dates: start: 202003, end: 202006
  2. MESALAMINE EXTENDED?RELEASE CAPSULES [Suspect]
     Active Substance: MESALAMINE
     Indication: PRODUCT USE IN UNAPPROVED INDICATION
     Route: 048
     Dates: start: 202009
  3. LOSARTAN. [Concomitant]
     Active Substance: LOSARTAN
     Indication: HYPERTENSION
     Route: 048

REACTIONS (5)
  - Lip exfoliation [Unknown]
  - Lip pruritus [Unknown]
  - Product use in unapproved indication [Unknown]
  - Lip swelling [Unknown]
  - Oral discomfort [Unknown]

NARRATIVE: CASE EVENT DATE: 2020
